FAERS Safety Report 5363199-9 (Version None)
Quarter: 2007Q2

REPORT INFORMATION
  Report Type: 
  Country: None (occurrence: None)
  Receive Date: 20070620
  Receipt Date: 20070611
  Transmission Date: 20071010
  Serious: Yes (Other)
  Sender: FDA-Public Use
  Company Number: PHEH2007US06637

PATIENT
  Sex: Female

DRUGS (3)
  1. ZELNORM [Suspect]
     Indication: CONSTIPATION
     Route: 048
     Dates: start: 20070301, end: 20070401
  2. SERTRALINE [Concomitant]
  3. CLONAZEPAM [Concomitant]

REACTIONS (4)
  - CHEST PAIN [None]
  - GALLBLADDER DISORDER [None]
  - GALLBLADDER OPERATION [None]
  - PAIN IN EXTREMITY [None]
